FAERS Safety Report 9310504 (Version 3)
Quarter: 2017Q4

REPORT INFORMATION
  Report Type: Spontaneous
  Country: US (occurrence: US)
  Receive Date: 20130527
  Receipt Date: 20171227
  Transmission Date: 20180321
  Serious: No
  Sender: FDA-Public Use
  Company Number: US-PFIZER INC-2013159656

PATIENT
  Age: 54 Year
  Sex: Female
  Weight: 50.79 kg

DRUGS (22)
  1. FLEXERIL [Concomitant]
     Active Substance: CYCLOBENZAPRINE HYDROCHLORIDE
     Dosage: 10 MG, AS NEEDED (1 TABLET AS NEEDED ORALLY THREE TIMES A DAY)
     Route: 048
     Dates: start: 20170914
  2. VITAMIN B COMPLEX [Concomitant]
     Active Substance: CYANOCOBALAMIN\DEXPANTHENOL\NIACINAMIDE\PYRIDOXINE HYDROCHLORIDE\RIBOFLAVIN 5^-PHOSPHATE SODIUM\THIAMINE HYDROCHLORIDE\VITAMIN B COMPLEX
     Dosage: UNK
     Route: 048
  3. ZOFRAN [Concomitant]
     Active Substance: ONDANSETRON HYDROCHLORIDE
     Dosage: 4 MG, AS NEEDED (AS DIRECTED ORALLY TID PRN)
     Route: 048
     Dates: start: 20150624
  4. PROTONIX [Concomitant]
     Active Substance: PANTOPRAZOLE SODIUM
     Dosage: 20 MG, 2X/DAY
     Route: 048
     Dates: start: 20171027
  5. IMODIUM A-D [Concomitant]
     Active Substance: LOPERAMIDE HYDROCHLORIDE
     Indication: DIARRHOEA
     Dosage: 2 MG, AS NEEDED (1 TABLET AS NEEDED FOR DIARRHEA ORALLY 8 TIME(S) A DAY)
     Route: 048
     Dates: start: 20160429
  6. ASPIRIN. [Concomitant]
     Active Substance: ASPIRIN
     Dosage: 325 MG, 1X/DAY
     Route: 048
     Dates: start: 20160415
  7. TRAZODONE HYDROCHLORIDE. [Concomitant]
     Active Substance: TRAZODONE HYDROCHLORIDE
     Dosage: 120 MG, 1X/DAY (2 TABLET AT BEDTIME ORALLY ONCE A DAY)
     Route: 048
  8. ATORVASTATIN CALCIUM. [Concomitant]
     Active Substance: ATORVASTATIN CALCIUM
     Dosage: 40 MG, 1X/DAY
     Route: 048
  9. MIRALAX [Concomitant]
     Active Substance: POLYETHYLENE GLYCOL 3350
     Dosage: 17 G, 1X/DAY (17 GRAMS ORALLY AT HOUR OF SLEEP)
     Route: 048
     Dates: start: 20170224
  10. SYNTHROID [Concomitant]
     Active Substance: LEVOTHYROXINE SODIUM
     Dosage: UNK UNK, 1X/DAY (TAKE 1 TABLET BY MOUTH IN THE MORNING ON AN EMPTY STOMACH)
     Route: 048
  11. PROTONIX [Concomitant]
     Active Substance: PANTOPRAZOLE SODIUM
     Indication: GASTROOESOPHAGEAL REFLUX DISEASE
     Dosage: 40 MG, 1X/DAY
  12. NOVOLIN N [Concomitant]
     Active Substance: INSULIN HUMAN
     Dosage: 24 IU, 1X/DAY (14 UNITS SUBCUTANEOUS IN THE MORNING AND 10 UNITS IN THE EVENING AS DIRECTED)
     Route: 058
  13. LORAZEPAM. [Concomitant]
     Active Substance: LORAZEPAM
     Dosage: 0.5 MG, AS NEEDED (1 TABLET ORALLY BID PRN)
     Route: 048
  14. LISINOPRIL. [Concomitant]
     Active Substance: LISINOPRIL
     Dosage: 40 MG, 1X/DAY
     Route: 048
  15. PROZAC [Concomitant]
     Active Substance: FLUOXETINE HYDROCHLORIDE
     Dosage: 20 MG, 1X/DAY (1 CAPSULE IN THE MORNING ORALLY ONCE A DAY)
     Route: 048
     Dates: start: 20171128
  16. LYRICA [Suspect]
     Active Substance: PREGABALIN
     Indication: FIBROMYALGIA
     Dosage: 200 MG, 3X/DAY
     Route: 048
  17. ALBUTEROL SULFATE. [Concomitant]
     Active Substance: ALBUTEROL SULFATE
     Dosage: 216 UG, AS NEEDED (2 PUFFS AS NEEDED INHALATION EVERY 4 HRS)
     Route: 055
     Dates: start: 20140411
  18. FLONASE [Concomitant]
     Active Substance: FLUTICASONE PROPIONATE
     Dosage: 100 UG, 1X/DAY (50 MCG/ACT SUSPENSION)
     Route: 045
     Dates: start: 20171009
  19. CLARITIN [Concomitant]
     Active Substance: LORATADINE
     Dosage: 10 MG, 1X/DAY
     Route: 048
     Dates: start: 20160509
  20. METFORMIN HCL [Concomitant]
     Active Substance: METFORMIN HYDROCHLORIDE
     Dosage: 500 MG, 1X/DAY
     Route: 048
  21. NAPROSYN [Concomitant]
     Active Substance: NAPROXEN
     Dosage: UNK, AS NEEDED (TAKE 1 TABLET BY MOUTH EVERY TWELVE HOURS)
     Route: 048
  22. NORCO [Concomitant]
     Active Substance: ACETAMINOPHEN\HYDROCODONE BITARTRATE
     Dosage: UNK, AS NEEDED [HYDROCODONE BITARTRATE: 7.5 MG / ACETAMINOPHEN: 325 MG] (1 TABLET AS NEEDED TID)
     Route: 048
     Dates: start: 20151022

REACTIONS (1)
  - Drug ineffective [Unknown]
